FAERS Safety Report 26076697 (Version 1)
Quarter: 2025Q4

REPORT INFORMATION
  Report Type: Spontaneous
  Country: EU (occurrence: EU)
  Receive Date: 20251121
  Receipt Date: 20251121
  Transmission Date: 20260117
  Serious: Yes (Other)
  Sender: INCYTE
  Company Number: EU-002147023-NVSC2025HU177926

PATIENT
  Age: 68 Year

DRUGS (4)
  1. RUXOLITINIB [Suspect]
     Active Substance: RUXOLITINIB
     Indication: Myeloproliferative neoplasm
     Dosage: 20 MG, BID
     Route: 065
  2. RUXOLITINIB [Suspect]
     Active Substance: RUXOLITINIB
     Indication: Polycythaemia vera
     Dosage: 5 MG (2X)
     Route: 065
  3. ANAGRELIDE [Concomitant]
     Active Substance: ANAGRELIDE
     Indication: Myeloproliferative neoplasm
     Dosage: UNK (2X1)
     Route: 065
  4. ANAGRELIDE [Concomitant]
     Active Substance: ANAGRELIDE
     Indication: Polycythaemia vera

REACTIONS (12)
  - Myelosuppression [Recovering/Resolving]
  - Bone marrow myelogram abnormal [Unknown]
  - Platelet count decreased [Not Recovered/Not Resolved]
  - Dizziness [Unknown]
  - Pruritus [Unknown]
  - White blood cell count increased [Recovered/Resolved]
  - Platelet count increased [Recovering/Resolving]
  - Hepatosplenomegaly [Recovered/Resolved]
  - Haemoglobin decreased [Unknown]
  - Haemoglobin increased [Recovering/Resolving]
  - Therapeutic response decreased [Recovering/Resolving]
  - Off label use [Unknown]
